FAERS Safety Report 4601386-5 (Version None)
Quarter: 2005Q1

REPORT INFORMATION
  Report Type: 
  Country: None (occurrence: None)
  Receive Date: 20050204
  Receipt Date: 20040810
  Transmission Date: 20050727
  Serious: Yes (Hospitalization)
  Sender: FDA-Public Use
  Company Number: 800088

PATIENT
  Age: 67 Year
  Sex: Female
  Weight: 63.5036 kg

DRUGS (12)
  1. DIANEAL [Suspect]
     Indication: PERITONEAL DIALYSIS
     Dosage: 2.5 L; Q6H; INTAPERITONEAL
     Route: 033
     Dates: start: 20020301
  2. ALBUTEROL [Concomitant]
  3. AXID [Concomitant]
  4. BUFFERIN L [Concomitant]
  5. CHROMAGEN FORTE [Concomitant]
  6. NEPHRO-VITE RX [Concomitant]
  7. PLETAL [Concomitant]
  8. SEVELAMER HYDROCHLORIDE [Concomitant]
  9. SORBITAL [Concomitant]
  10. IBUPROFEN [Concomitant]
  11. MIRALAX [Concomitant]
  12. EPOGEN [Concomitant]

REACTIONS (1)
  - PERITONITIS BACTERIAL [None]
